FAERS Safety Report 11390017 (Version 1)
Quarter: 2015Q3

REPORT INFORMATION
  Report Type: Spontaneous
  Country: CN (occurrence: CN)
  Receive Date: 20150818
  Receipt Date: 20150818
  Transmission Date: 20151125
  Serious: Yes (Hospitalization)
  Sender: FDA-Public Use
  Company Number: CN-ASTRAZENECA-2015SE30648

PATIENT
  Age: 80 Year
  Sex: Male

DRUGS (7)
  1. LOSEC [Suspect]
     Active Substance: OMEPRAZOLE
     Dosage: 20 MG; ONE-TWO TABLET DAILY
     Route: 048
  2. ACERTIL [Concomitant]
  3. BETALOC ZOK [Suspect]
     Active Substance: METOPROLOL SUCCINATE
     Indication: HYPERTENSION
     Route: 048
     Dates: start: 2014
  4. BETALOC ZOK [Suspect]
     Active Substance: METOPROLOL SUCCINATE
     Indication: ATRIAL FIBRILLATION
     Route: 048
     Dates: start: 20150330
  5. ASPIRIN. [Suspect]
     Active Substance: ASPIRIN
     Dosage: BAYER PRODUCT
     Route: 048
  6. BETALOC ZOK [Suspect]
     Active Substance: METOPROLOL SUCCINATE
     Indication: ATRIAL FIBRILLATION
     Route: 048
     Dates: start: 2014
  7. BETALOC ZOK [Suspect]
     Active Substance: METOPROLOL SUCCINATE
     Indication: HYPERTENSION
     Route: 048
     Dates: start: 20150330

REACTIONS (3)
  - Intentional product misuse [Recovered/Resolved]
  - Gastric haemorrhage [Unknown]
  - Dysgeusia [Recovered/Resolved]
